FAERS Safety Report 4344356-7 (Version None)
Quarter: 2004Q2

REPORT INFORMATION
  Report Type: 
  Country: None (occurrence: None)
  Receive Date: 20040420
  Receipt Date: 20040407
  Transmission Date: 20050107
  Serious: Yes (Hospitalization)
  Sender: FDA-Public Use
  Company Number: 2004207068JP

PATIENT
  Age: 66 Year
  Sex: Female
  Weight: 56 kg

DRUGS (2)
  1. HALCION [Suspect]
     Indication: SUICIDE ATTEMPT
     Dosage: 7.5 MG, SINGLE, ORAL
     Route: 048
     Dates: start: 20040330, end: 20040330
  2. ASPENON (APRINDINE HYDROCHLORIDE) [Concomitant]

REACTIONS (3)
  - BLOOD CREATINE PHOSPHOKINASE INCREASED [None]
  - BLOOD URIC ACID DECREASED [None]
  - SUICIDE ATTEMPT [None]
